FAERS Safety Report 8086962-2 (Version None)
Quarter: 2012Q1

REPORT INFORMATION
  Report Type: 
  Country: None (occurrence: None)
  Receive Date: 20120128
  Receipt Date: 20110517
  Transmission Date: 20120608
  Serious: No
  Sender: FDA-Public Use
  Company Number: US-ABBOTT-11P-163-0727374-00

PATIENT
  Age: 49 Year
  Sex: Male

DRUGS (2)
  1. HUMIRA [Suspect]
     Indication: PSORIATIC ARTHROPATHY
     Route: 058
     Dates: start: 20110101, end: 20110101
  2. HUMIRA [Suspect]
     Route: 058
     Dates: start: 20110101

REACTIONS (2)
  - RASH MACULAR [None]
  - DRUG INEFFECTIVE [None]
